FAERS Safety Report 4932986-0 (Version None)
Quarter: 2006Q1

REPORT INFORMATION
  Report Type: 
  Country: None (occurrence: None)
  Receive Date: 20060302
  Receipt Date: 20060302
  Transmission Date: 20060701
  Serious: Yes (Other)
  Sender: FDA-Public Use
  Company Number: None

PATIENT
  Age: 29 Year
  Sex: Male
  Weight: 125.1928 kg

DRUGS (1)
  1. KADIAN [Suspect]
     Indication: PAIN IN EXTREMITY
     Dosage: 60MG PO
     Route: 048
     Dates: start: 20060203

REACTIONS (1)
  - HEADACHE [None]
